FAERS Safety Report 10120736 (Version 1)
Quarter: 2014Q2

REPORT INFORMATION
  Report Type: Spontaneous
  Country: HU (occurrence: HU)
  Receive Date: 20140425
  Receipt Date: 20140425
  Transmission Date: 20141212
  Serious: Yes (Life-Threatening, Hospitalization)
  Sender: FDA-Public Use
  Company Number: PHHY2014HU049286

PATIENT
  Age: 59 Year
  Sex: Male

DRUGS (15)
  1. METRONIDAZOLE [Suspect]
     Route: 041
  2. VANCOMYCIN [Suspect]
     Dosage: 125 MG, QID
     Route: 048
  3. VANCOMYCIN [Suspect]
     Dosage: 500 MG, QID
  4. SULFAMETHOXAZOLE [Concomitant]
  5. TRIMETHOPRIM [Concomitant]
  6. CEFIXIME [Concomitant]
  7. CIPROFLOXACIN [Concomitant]
  8. NORFLOXACIN [Concomitant]
  9. STEROID NOS [Concomitant]
     Indication: PYREXIA
  10. CEFTRIAXONE [Concomitant]
     Indication: KLEBSIELLA INFECTION
  11. CEFTRIAXONE [Concomitant]
     Indication: PNEUMONIA KLEBSIELLA
  12. CEFTRIAXONE [Concomitant]
     Indication: SEPSIS
  13. AMIKACIN [Concomitant]
     Indication: KLEBSIELLA INFECTION
  14. AMIKACIN [Concomitant]
     Indication: PNEUMONIA KLEBSIELLA
  15. AMIKACIN [Concomitant]
     Indication: SEPSIS

REACTIONS (36)
  - Clostridium difficile infection [Unknown]
  - Pseudomembranous colitis [Unknown]
  - Diarrhoea [Recovered/Resolved]
  - Abdominal distension [Recovered/Resolved]
  - Leukocytosis [Recovered/Resolved]
  - Abdominal pain [Recovered/Resolved]
  - Hypoalbuminaemia [Recovered/Resolved]
  - Leukaemoid reaction [Recovered/Resolved]
  - Oedema mucosal [Recovered/Resolved]
  - Hypovolaemia [Unknown]
  - Abdominal distension [Unknown]
  - Localised intraabdominal fluid collection [Recovered/Resolved]
  - Megacolon [Recovered/Resolved]
  - Sepsis [Recovered/Resolved]
  - Multi-organ failure [Unknown]
  - Asthenia [Unknown]
  - Pallor [Unknown]
  - Skin turgor decreased [Unknown]
  - Tongue dry [Unknown]
  - Lid sulcus deepened [Unknown]
  - Diaphragmatic disorder [Unknown]
  - Barrel chest [Unknown]
  - Oliguria [Unknown]
  - Hypotonia [Unknown]
  - Hypopnoea [Unknown]
  - Dyspnoea [Unknown]
  - Dyspnoea exertional [Unknown]
  - Renal impairment [Unknown]
  - General physical health deterioration [Unknown]
  - Ileus paralytic [Unknown]
  - Pathogen resistance [Unknown]
  - Pleural effusion [Unknown]
  - Breath sounds abnormal [Unknown]
  - Atelectasis [Unknown]
  - Acute prerenal failure [Unknown]
  - Drug effect incomplete [Recovered/Resolved]
